FAERS Safety Report 9422009 (Version 3)
Quarter: 2013Q4

REPORT INFORMATION
  Report Type: Spontaneous
  Country: US (occurrence: US)
  Receive Date: 20130726
  Receipt Date: 20131009
  Transmission Date: 20140711
  Serious: Yes (Death)
  Sender: FDA-Public Use
  Company Number: US-JNJFOC-20130710972

PATIENT
  Sex: Female
  Weight: 107.5 kg

DRUGS (8)
  1. INVEGA SUSTENNA [Suspect]
     Indication: SCHIZOPHRENIA
     Route: 030
     Dates: start: 20130522
  2. INVEGA SUSTENNA [Suspect]
     Indication: SCHIZOPHRENIA
     Route: 030
     Dates: start: 2010
  3. ABILIFY [Concomitant]
     Indication: SCHIZOPHRENIA
     Route: 030
     Dates: start: 20130619
  4. HUMULIN INSULIN [Concomitant]
     Indication: DIABETES MELLITUS
     Dosage: 50 UNITS
     Route: 065
  5. LISINOPRIL [Concomitant]
     Indication: HYPERTENSION
     Dosage: 10
     Route: 065
  6. METFORMIN [Concomitant]
     Indication: LIPIDS INCREASED
     Route: 065
  7. FUROSEMIDE [Concomitant]
     Indication: HYPERTENSION
     Route: 065
  8. TRIAMTERENE-HCTZ [Concomitant]
     Route: 065

REACTIONS (4)
  - Myocardial infarction [Fatal]
  - Adverse event [Unknown]
  - Blood triglycerides increased [Unknown]
  - Weight increased [Unknown]
